FAERS Safety Report 5568300-X (Version None)
Quarter: 2007Q4

REPORT INFORMATION
  Report Type: 
  Country: None (occurrence: None)
  Receive Date: 20071220
  Receipt Date: 20071212
  Transmission Date: 20080405
  Serious: Yes (Other)
  Sender: FDA-Public Use
  Company Number: US-JNJFOC-20071003492

PATIENT
  Sex: Male
  Weight: 66 kg

DRUGS (2)
  1. REMICADE [Suspect]
     Indication: CROHN'S DISEASE
     Dosage: 10 INFUSIONS TOTAL
     Route: 042
  2. AZATHIOPRINE [Concomitant]

REACTIONS (1)
  - MALIGNANT LYMPHOMA UNCLASSIFIABLE LOW GRADE [None]
